FAERS Safety Report 4567757-0 (Version None)
Quarter: 2005Q1

REPORT INFORMATION
  Report Type: 
  Country: None (occurrence: None)
  Receive Date: 20050125
  Receipt Date: 20050125
  Transmission Date: 20050727
  Serious: Yes (Hospitalization)
  Sender: FDA-Public Use
  Company Number: None

PATIENT
  Age: 30 Year
  Sex: Male
  Weight: 115.6672 kg

DRUGS (11)
  1. ZYPREXA [Suspect]
     Indication: BIPOLAR DISORDER
     Dosage: 15 MG, QHS PO
     Route: 048
     Dates: start: 20041216, end: 20050110
  2. ZYPREXA [Suspect]
     Indication: PSYCHOTIC DISORDER
     Dosage: 15 MG, QHS PO
     Route: 048
     Dates: start: 20041216, end: 20050110
  3. CLONAZEPAM [Concomitant]
  4. ZYPREXA [Concomitant]
  5. LITHIUM [Concomitant]
  6. LOXAPINE [Concomitant]
  7. LAMICTAL [Concomitant]
  8. SEROQUEL [Concomitant]
  9. EFFEXOR XR [Concomitant]
  10. METFORMIN HCL [Concomitant]
  11. AMBIEN [Concomitant]

REACTIONS (4)
  - DEHYDRATION [None]
  - DIABETES MELLITUS [None]
  - LACTIC ACIDOSIS [None]
  - URINE KETONE BODY PRESENT [None]
